FAERS Safety Report 4837717-0 (Version None)
Quarter: 2005Q4

REPORT INFORMATION
  Report Type: 
  Country: None (occurrence: None)
  Receive Date: 20051024
  Receipt Date: 20050805
  Transmission Date: 20060501
  Serious: No
  Sender: FDA-Public Use
  Company Number: 216110

PATIENT
  Sex: Male

DRUGS (10)
  1. XOLAIR [Suspect]
     Indication: ASTHMA
     Dosage: 375 MG, Q2W, SUBCUTANEOUS
     Route: 058
     Dates: start: 20050407
  2. ADVAIR DISKUS 100/50 [Concomitant]
  3. SINGULAIR [Concomitant]
  4. ZYRTEC [Concomitant]
  5. THEOPHYLLINE [Concomitant]
  6. NASAREL SPRAY (GENERIC COMPONENTS) [Concomitant]
  7. OPTIVAR (AZELASTINE HYDROCHLORIDE) [Concomitant]
  8. METFORMIN HCL [Concomitant]
  9. NEXIUM [Concomitant]
  10. DUONEB (ALBUTEROL, ALBUTEROL SULFATE, IPRATROPIUM BROMIDE) [Concomitant]

REACTIONS (3)
  - CONTUSION [None]
  - DIZZINESS [None]
  - HEADACHE [None]
